FAERS Safety Report 4374441-5 (Version None)
Quarter: 2004Q2

REPORT INFORMATION
  Report Type: 
  Country: None (occurrence: None)
  Receive Date: 20040608
  Receipt Date: 20040608
  Transmission Date: 20050107
  Serious: Yes (Hospitalization)
  Sender: FDA-Public Use
  Company Number: None

PATIENT
  Age: 39 Year
  Sex: Female
  Weight: 102.0593 kg

DRUGS (1)
  1. MITOMYCIN-C BULK POWDER [Suspect]
     Indication: PERITONEAL CARCINOMA
     Dosage: 70 MG IP X 90
     Route: 050
     Dates: start: 20040506

REACTIONS (9)
  - ANAEMIA [None]
  - ASCITES [None]
  - DIAPHRAGM NEOPLASM [None]
  - ILEUS [None]
  - INCISION SITE COMPLICATION [None]
  - NEUTROPENIA [None]
  - PNEUMOTHORAX [None]
  - POST PROCEDURAL COMPLICATION [None]
  - PYREXIA [None]
